FAERS Safety Report 7281544-4 (Version None)
Quarter: 2011Q1

REPORT INFORMATION
  Report Type: 
  Country: None (occurrence: None)
  Receive Date: 20110208
  Receipt Date: 20110128
  Transmission Date: 20110831
  Serious: Yes (Hospitalization, Other)
  Sender: FDA-Public Use
  Company Number: PHHY2010BR35696

PATIENT
  Age: 67 Year
  Sex: Female

DRUGS (2)
  1. DIOVAN [Suspect]
     Dosage: 160 MG, UNK
     Route: 048
  2. DIOVAN [Suspect]
     Dosage: 0.5 DF
     Route: 048

REACTIONS (5)
  - HYPOTENSION [None]
  - DRUG PRESCRIBING ERROR [None]
  - PAIN IN EXTREMITY [None]
  - THROMBOSIS [None]
  - GASTROINTESTINAL NEOPLASM [None]
